FAERS Safety Report 8223246-3 (Version None)
Quarter: 2012Q1

REPORT INFORMATION
  Report Type: 
  Country: None (occurrence: None)
  Receive Date: 20120321
  Receipt Date: 20120312
  Transmission Date: 20120608
  Serious: Yes (Other)
  Sender: FDA-Public Use
  Company Number: US-ROCHE-1022842

PATIENT
  Sex: Male
  Weight: 90.8 kg

DRUGS (2)
  1. ACCUTANE [Suspect]
     Indication: ACNE
     Dates: start: 19850101
  2. ACCUTANE [Suspect]
     Dates: start: 20010101

REACTIONS (6)
  - EMOTIONAL DISTRESS [None]
  - COLITIS ULCERATIVE [None]
  - IRRITABLE BOWEL SYNDROME [None]
  - GASTROINTESTINAL ULCER [None]
  - SUICIDAL IDEATION [None]
  - DEPRESSION [None]
